FAERS Safety Report 12192383 (Version 1)
Quarter: 2016Q1

REPORT INFORMATION
  Report Type: Spontaneous
  Country: TR (occurrence: TR)
  Receive Date: 20160318
  Receipt Date: 20160318
  Transmission Date: 20160526
  Serious: Yes (Other)
  Sender: FDA-Public Use
  Company Number: TR-MYLANLABS-2016M1011702

PATIENT

DRUGS (3)
  1. CAPECITABINE. [Suspect]
     Active Substance: CAPECITABINE
     Dosage: 1000 MG/M2/DAY AS MAINTAINENCE THERAPY
     Route: 065
  2. CISPLATIN. [Concomitant]
     Active Substance: CISPLATIN
     Indication: GASTRIC CANCER STAGE IV
     Dosage: 55 MG/M2 FOR DAY 1 ONCE EVERY THREE WEEKS FOR THREE CYCLES
     Route: 065
  3. CAPECITABINE. [Suspect]
     Active Substance: CAPECITABINE
     Indication: GASTRIC CANCER STAGE IV
     Dosage: 2000 MG/M2 FOR DAY 1 TO 14 ONCE EVERY 3 WEEKS FOR 3 CYCLES
     Route: 065

REACTIONS (1)
  - Organising pneumonia [Unknown]
